FAERS Safety Report 7386176-5 (Version None)
Quarter: 2011Q1

REPORT INFORMATION
  Report Type: 
  Country: None (occurrence: None)
  Receive Date: 20110329
  Receipt Date: 20110329
  Transmission Date: 20110831
  Serious: Yes (Life-Threatening, Hospitalization, Disabling, Other)
  Sender: FDA-Public Use
  Company Number: None

PATIENT
  Age: 51 Year
  Sex: Male
  Weight: 113.8529 kg

DRUGS (1)
  1. VICTOZA [Suspect]
     Indication: DIABETES MELLITUS
     Dosage: .6MG ONCE DAILY SQ
     Route: 058
     Dates: start: 20110301, end: 20110310

REACTIONS (8)
  - PERIPHERAL COLDNESS [None]
  - PRURITUS [None]
  - RASH [None]
  - HEADACHE [None]
  - DYSPNOEA [None]
  - PALPITATIONS [None]
  - VOMITING [None]
  - HYPERHIDROSIS [None]
